FAERS Safety Report 6140716-2 (Version None)
Quarter: 2009Q2

REPORT INFORMATION
  Report Type: 
  Country: None (occurrence: None)
  Receive Date: 20090402
  Receipt Date: 20090324
  Transmission Date: 20091009
  Serious: Yes (Hospitalization)
  Sender: FDA-Public Use
  Company Number: US-BIOGENIDEC-2009BI009344

PATIENT
  Age: 56 Year
  Sex: Female

DRUGS (3)
  1. AVONEX [Suspect]
     Indication: MULTIPLE SCLEROSIS
     Route: 030
     Dates: start: 19980226, end: 20081110
  2. AVONEX [Suspect]
     Route: 030
     Dates: start: 20081208, end: 20081229
  3. AVONEX [Suspect]
     Route: 030
     Dates: start: 20090112

REACTIONS (4)
  - ABDOMINAL PAIN UPPER [None]
  - ARRHYTHMIA [None]
  - RENAL CELL CARCINOMA [None]
  - VOMITING [None]
